FAERS Safety Report 25225675 (Version 10)
Quarter: 2025Q4

REPORT INFORMATION
  Report Type: Spontaneous
  Country: US (occurrence: US)
  Receive Date: 20250422
  Receipt Date: 20251211
  Transmission Date: 20260117
  Serious: Yes (Death, Hospitalization, Other)
  Sender: GILEAD
  Company Number: US-GILEAD-2025-0711169

PATIENT
  Age: 66 Year
  Sex: Male
  Weight: 61.7 kg

DRUGS (14)
  1. EPCLUSA [Suspect]
     Active Substance: SOFOSBUVIR\VELPATASVIR
     Indication: Hepatitis C
     Dosage: UNK
     Route: 065
  2. LORAZEPAM [Concomitant]
     Active Substance: LORAZEPAM
  3. ONDANSETRON [Concomitant]
     Active Substance: ONDANSETRON
  4. HYDROMORPHONE HYDROCHLORIDE [Concomitant]
     Active Substance: HYDROMORPHONE HYDROCHLORIDE
  5. HEPARIN SODIUM [Concomitant]
     Active Substance: HEPARIN SODIUM
  6. LIDOCAINE [Concomitant]
     Active Substance: LIDOCAINE
  7. PHENOL [Concomitant]
     Active Substance: PHENOL
  8. ATORVASTATIN [Concomitant]
     Active Substance: ATORVASTATIN
  9. COENZYME Q10 [Concomitant]
     Active Substance: DIETARY SUPPLEMENT\UBIDECARENONE
  10. VITAMIN E [Concomitant]
     Active Substance: .ALPHA.-TOCOPHEROL
  11. OLMESARTAN [Concomitant]
     Active Substance: OLMESARTAN
  12. MORPHINE SULFATE [Concomitant]
     Active Substance: MORPHINE SULFATE
  13. SODIUM CHLORIDE [Concomitant]
     Active Substance: SODIUM CHLORIDE
  14. DEXTROSE [Concomitant]
     Active Substance: DEXTROSE MONOHYDRATE
     Dosage: UNK

REACTIONS (15)
  - Hepatic failure [Fatal]
  - Renal failure [Fatal]
  - Acute kidney injury [Fatal]
  - Hyponatraemia [Fatal]
  - Cardiopulmonary failure [Fatal]
  - Cardiac failure [Fatal]
  - Fatigue [Unknown]
  - Gait disturbance [Unknown]
  - Disturbance in attention [Unknown]
  - Decreased appetite [Unknown]
  - Abdominal pain [Unknown]
  - Headache [Unknown]
  - Malaise [Unknown]
  - Dry throat [Unknown]
  - Pain [Unknown]
